FAERS Safety Report 6106981-2 (Version None)
Quarter: 2009Q1

REPORT INFORMATION
  Report Type: 
  Country: None (occurrence: None)
  Receive Date: 20090309
  Receipt Date: 20090305
  Transmission Date: 20090719
  Serious: Yes (Other)
  Sender: FDA-Public Use
  Company Number: CA-JNJFOC-20090100574

PATIENT
  Sex: Female

DRUGS (4)
  1. DURAGESIC-100 [Suspect]
     Route: 062
  2. DURAGESIC-100 [Suspect]
     Indication: ANALGESIA
     Route: 062
  3. NOZINAN [Concomitant]
     Indication: RELAXATION THERAPY
  4. IMIPRAMINE [Concomitant]

REACTIONS (4)
  - MYOCARDIAL INFARCTION [None]
  - NAUSEA [None]
  - OVERDOSE [None]
  - TREATMENT NONCOMPLIANCE [None]
